FAERS Safety Report 8839953 (Version 4)
Quarter: 2013Q3

REPORT INFORMATION
  Report Type: Spontaneous
  Country: US (occurrence: US)
  Receive Date: 20121015
  Receipt Date: 20130731
  Transmission Date: 20140515
  Serious: Yes (Other)
  Sender: FDA-Public Use
  Company Number: US-JNJFOC-20121004900

PATIENT
  Sex: Female

DRUGS (5)
  1. ULTRAM [Suspect]
     Indication: PRODUCT USED FOR UNKNOWN INDICATION
     Route: 065
  2. ADVIL [Suspect]
     Indication: PRODUCT USED FOR UNKNOWN INDICATION
     Route: 065
  3. CELEBREX [Suspect]
     Indication: OSTEOARTHRITIS
     Route: 065
  4. ASPIRIN [Suspect]
     Indication: PRODUCT USED FOR UNKNOWN INDICATION
     Route: 065
  5. EFFEXOR XR [Concomitant]
     Indication: ANXIETY
     Route: 065

REACTIONS (5)
  - Ulcer haemorrhage [Unknown]
  - Osteopenia [Unknown]
  - Osteoporosis [Unknown]
  - Diabetes mellitus [Unknown]
  - Product quality issue [Unknown]
